FAERS Safety Report 25510383 (Version 1)
Quarter: 2025Q3

REPORT INFORMATION
  Report Type: Spontaneous
  Country: US (occurrence: US)
  Receive Date: 20250703
  Receipt Date: 20250703
  Transmission Date: 20251021
  Serious: No
  Sender: RADIUS PHARM
  Company Number: US-RADIUS HEALTH INC.-2024US005779

PATIENT
  Sex: Female

DRUGS (3)
  1. TYMLOS [Suspect]
     Active Substance: ABALOPARATIDE
     Indication: Pathological fracture
     Dosage: 80 MICROGRAM, QD
     Route: 058
     Dates: start: 202405
  2. TYMLOS [Suspect]
     Active Substance: ABALOPARATIDE
     Indication: Senile osteoporosis
  3. METHYLPREDNISOLONE [Suspect]
     Active Substance: METHYLPREDNISOLONE
     Indication: Unevaluable event
     Route: 065

REACTIONS (12)
  - Memory impairment [Unknown]
  - Urinary sediment present [Unknown]
  - Chills [Unknown]
  - Bladder irritation [Unknown]
  - Stress urinary incontinence [Unknown]
  - Chromaturia [Unknown]
  - Anal incontinence [Unknown]
  - Blood glucose increased [Unknown]
  - Unevaluable event [Unknown]
  - Night sweats [Unknown]
  - Insomnia [Unknown]
  - Emergency care [Unknown]
